APPROVED DRUG PRODUCT: AMANTADINE HYDROCHLORIDE
Active Ingredient: AMANTADINE HYDROCHLORIDE
Strength: 50MG/5ML
Dosage Form/Route: SYRUP;ORAL
Application: A072655 | Product #001
Applicant: G AND W LABORATORIES INC
Approved: Oct 30, 1990 | RLD: No | RS: No | Type: DISCN